FAERS Safety Report 4444427-0 (Version None)
Quarter: 2004Q3

REPORT INFORMATION
  Report Type: 
  Country: None (occurrence: None)
  Receive Date: 20040902
  Receipt Date: 20040628
  Transmission Date: 20050211
  Serious: Yes (Hospitalization)
  Sender: FDA-Public Use
  Company Number: A03200402137

PATIENT
  Age: 88 Year
  Sex: Female
  Weight: 49.4421 kg

DRUGS (7)
  1. PLAVIX [Suspect]
     Indication: CORONARY ARTERY SURGERY
     Dosage: 75 MG QD - ORAL
     Route: 048
     Dates: start: 20040524, end: 20040718
  2. ACETYLSALICYLIC ACID [Concomitant]
  3. SIMVASTATIN [Concomitant]
  4. GLIPIZIDE [Concomitant]
  5. VALSARTAN [Concomitant]
  6. NITROGLYCERIN [Concomitant]
  7. TRIAMTERENE AND HYDROCHLOROTHIAZIDE [Concomitant]

REACTIONS (7)
  - BLOOD BICARBONATE INCREASED [None]
  - BLOOD CHLORIDE DECREASED [None]
  - EOSINOPHILIA [None]
  - HAEMATOCRIT DECREASED [None]
  - NEPHRITIS [None]
  - PCO2 INCREASED [None]
  - RENAL FAILURE [None]
